FAERS Safety Report 9204798 (Version 1)
Quarter: 2013Q1

REPORT INFORMATION
  Report Type: Spontaneous
  Country: US (occurrence: None)
  Receive Date: 20130329
  Receipt Date: 20130329
  Transmission Date: 20140127
  Serious: Yes (Hospitalization)
  Sender: FDA-Public Use
  Company Number: SYM-2013-02000

PATIENT
  Age: 67 Year
  Sex: Male

DRUGS (1)
  1. XENAZINE (TETRABENAZINE) (TABLETS) (TETRABENAZINE) [Suspect]
     Indication: HUNTINGTON^S DISEASE
     Dosage: 4 IN 1 D, ORAL
     Dates: start: 20100814

REACTIONS (1)
  - Hospitalisation [None]
